FAERS Safety Report 8916294 (Version 1)
Quarter: 2012Q4

REPORT INFORMATION
  Report Type: 
  Country: US (occurrence: US)
  Receive Date: 20121120
  Receipt Date: 20121120
  Transmission Date: 20130627
  Serious: Yes (Hospitalization)
  Sender: FDA-Public Use
  Company Number: US-OTSUKA-US-2012-11638

PATIENT
  Age: 83 Year
  Sex: Female

DRUGS (15)
  1. SAMSCA [Suspect]
     Indication: HYPONATRAEMIA
     Dosage: 15 Mg milligram(s), qd
     Route: 048
     Dates: start: 20121105
  2. LASIX [Concomitant]
     Dosage: 40 Mg milligram(s), unknown
     Route: 065
  3. K-DUR [Concomitant]
  4. DEPAKOTE [Concomitant]
  5. CALCIUM WITH VITAMIN D3 [Concomitant]
  6. BENTYL [Concomitant]
  7. MAGNESIUM OXIDE [Concomitant]
  8. PRILOSEC [Concomitant]
  9. IRON [Concomitant]
  10. LEVOTHYROXINE SODIUM [Concomitant]
  11. XANAX [Concomitant]
  12. LORTAB [Concomitant]
  13. PRESERVISION LUTEIN EYE VITA.+MIN.SUP.SOFTG. [Concomitant]
  14. WELLBUTRIN [Concomitant]
  15. VALSARTAN [Concomitant]

REACTIONS (1)
  - Blood sodium decreased [Unknown]
